FAERS Safety Report 25904120 (Version 4)
Quarter: 2025Q4

REPORT INFORMATION
  Report Type: Spontaneous
  Country: EU (occurrence: EU)
  Receive Date: 20251010
  Receipt Date: 20251113
  Transmission Date: 20260118
  Serious: Yes (Death, Other)
  Sender: CELLTRION
  Company Number: EU-CELLTRION INC.-2025FR036605

PATIENT

DRUGS (28)
  1. RITUXIMAB [Suspect]
     Active Substance: RITUXIMAB
     Indication: Hairy cell leukaemia
     Dosage: IN COMBINATION WITH VEMURAFENIB
     Route: 065
     Dates: start: 2023
  2. RITUXIMAB [Suspect]
     Active Substance: RITUXIMAB
     Indication: Hairy cell leukaemia recurrent
     Dosage: MONOTHERAPY
     Route: 065
     Dates: start: 202407
  3. RITUXIMAB [Suspect]
     Active Substance: RITUXIMAB
     Dosage: 375 MG/M2 (DAY 1)
     Route: 042
     Dates: start: 20241021, end: 20241021
  4. RITUXIMAB [Suspect]
     Active Substance: RITUXIMAB
     Dosage: 375 MG/M2 (DAY 8)
     Route: 042
     Dates: start: 20241028, end: 20241028
  5. RITUXIMAB [Suspect]
     Active Substance: RITUXIMAB
     Dosage: ADMINISTERED ON DAY 1 AND DAY 8
     Route: 065
  6. CLADRIBINE [Suspect]
     Active Substance: CLADRIBINE
     Indication: Hairy cell leukaemia
     Dosage: 5 DAYS OF CLADRIBINE (0.14 MG/KG/DAY) (D10-D14)/0.14 MG/KG, DAILY
     Route: 042
     Dates: start: 20241021, end: 20241025
  7. CLADRIBINE [Suspect]
     Active Substance: CLADRIBINE
     Indication: Hairy cell leukaemia recurrent
     Dosage: FOR HIS FIRST RELAPSE
     Route: 065
     Dates: start: 2020
  8. VEMURAFENIB [Concomitant]
     Active Substance: VEMURAFENIB
     Indication: Hairy cell leukaemia
     Dosage: UNK
     Dates: start: 2023
  9. CEFTRIAXONE [Concomitant]
     Active Substance: CEFTRIAXONE
     Indication: Product used for unknown indication
     Dosage: 2 G/DAY, IV (ON THE FIRST DAY)
     Route: 042
  10. CEFTRIAXONE [Concomitant]
     Active Substance: CEFTRIAXONE
     Dosage: 2 G/DAY, IV (FOR NINE DAYS WHILE INFECTIOUS AND BRAIN EXPLORATIONS WERE PERFORMED)
     Route: 042
  11. CEFTRIAXONE [Concomitant]
     Active Substance: CEFTRIAXONE
     Dosage: UNK
     Route: 042
     Dates: start: 20241012, end: 20241022
  12. CEFEPIME [Concomitant]
     Active Substance: CEFEPIME HYDROCHLORIDE
     Indication: Antibiotic therapy
     Dosage: 6 G/DAY, IV (D20-D24)
     Route: 042
     Dates: start: 20241031, end: 20241104
  13. AMIKACIN [Concomitant]
     Active Substance: AMIKACIN
     Indication: Antibiotic therapy
     Dosage: 1500 MG/DAY IV (D20, D21, D24)
     Route: 042
     Dates: start: 20241104, end: 20241104
  14. AMIKACIN [Concomitant]
     Active Substance: AMIKACIN
     Dosage: UNK
     Route: 042
     Dates: start: 20241031, end: 20241101
  15. AMIKACIN [Concomitant]
     Active Substance: AMIKACIN
     Dosage: UNK
     Route: 042
     Dates: start: 20241104, end: 20241104
  16. LINEZOLID [Concomitant]
     Active Substance: LINEZOLID
     Indication: Antibiotic therapy
     Dosage: 1200 MG/DAY, IV (D21-D31)
     Route: 042
     Dates: start: 20241101, end: 20241111
  17. MEROPENEM [Concomitant]
     Active Substance: MEROPENEM
     Indication: Antibiotic therapy
     Dosage: 6 G/DAY, IV (D24-D31)
     Route: 042
     Dates: start: 20241104, end: 20241111
  18. CASPOFUNGIN [Concomitant]
     Active Substance: CASPOFUNGIN
     Indication: Product used for unknown indication
     Dosage: 70 MG FOR THE FIRST ADMINISTRATION (D25)
     Dates: start: 20241105, end: 20241111
  19. CASPOFUNGIN [Concomitant]
     Active Substance: CASPOFUNGIN
     Dosage: 50 MG/DAY, IV (D26-D31)
     Route: 042
  20. CASPOFUNGIN [Concomitant]
     Active Substance: CASPOFUNGIN
     Dosage: 70MG FOR THE FIRST ADMINISTRATION AND THEN 50MG/DAY
     Route: 042
     Dates: start: 20241105, end: 20241111
  21. ROXITHROMYCIN [Concomitant]
     Active Substance: ROXITHROMYCIN
     Indication: Prophylaxis
     Dosage: 300 MG/DAY, ORAL (D2-D27)
     Route: 048
     Dates: start: 20241013, end: 20241107
  22. VALACYCLOVIR HYDROCHLORIDE [Concomitant]
     Active Substance: VALACYCLOVIR HYDROCHLORIDE
     Indication: Prophylaxis
     Dosage: 1 G/DAY, ORAL (D20-D27)
     Route: 048
     Dates: start: 20241031, end: 20241107
  23. ATOVAQUONE [Concomitant]
     Active Substance: ATOVAQUONE
     Indication: Prophylaxis
     Dosage: 1500 MG/DAY, ORAL (D19-D27)
     Route: 048
     Dates: start: 20241030, end: 20241107
  24. METHYLPREDNISOLONE [Concomitant]
     Active Substance: METHYLPREDNISOLONE
     Indication: Product used for unknown indication
     Dosage: 120 MG/DAY IV (D1-D3; D5-D15)
     Route: 042
  25. METHYLPREDNISOLONE [Concomitant]
     Active Substance: METHYLPREDNISOLONE
     Dosage: 40 MG IV/DAY (D16-D18)
     Route: 042
  26. METHYLPREDNISOLONE [Concomitant]
     Active Substance: METHYLPREDNISOLONE
     Dosage: UNK
     Route: 042
     Dates: start: 20241012, end: 20241014
  27. METHYLPREDNISOLONE [Concomitant]
     Active Substance: METHYLPREDNISOLONE
     Dosage: UNK
     Route: 042
     Dates: start: 20241016, end: 20241026
  28. METHYLPREDNISOLONE [Concomitant]
     Active Substance: METHYLPREDNISOLONE
     Dosage: UNK
     Route: 042
     Dates: start: 20241027, end: 20241029

REACTIONS (8)
  - Candida pneumonia [Fatal]
  - Pneumonia [Fatal]
  - Febrile bone marrow aplasia [Unknown]
  - Shock [Unknown]
  - Brain injury [Unknown]
  - Therapy partial responder [Unknown]
  - Intentional product use issue [Unknown]
  - Therapeutic product effect incomplete [Unknown]

NARRATIVE: CASE EVENT DATE: 20240101
